FAERS Safety Report 25587924 (Version 2)
Quarter: 2025Q3

REPORT INFORMATION
  Report Type: Spontaneous
  Country: US (occurrence: US)
  Receive Date: 20250721
  Receipt Date: 20250721
  Transmission Date: 20251021
  Serious: Yes (Other)
  Sender: APOTEX
  Company Number: US-APOTEX-2025AP010109

PATIENT
  Age: 71 Year
  Sex: Female

DRUGS (1)
  1. SIROLIMUS [Suspect]
     Active Substance: SIROLIMUS
     Indication: Lymphangioleiomyomatosis
     Dosage: 1 MILLIGRAM, QD
     Route: 065

REACTIONS (2)
  - Cardiac tamponade [Not Recovered/Not Resolved]
  - Pericardial effusion [Not Recovered/Not Resolved]
